FAERS Safety Report 11753984 (Version 1)
Quarter: 2015Q4

REPORT INFORMATION
  Report Type: Spontaneous
  Country: US (occurrence: None)
  Receive Date: 20151118
  Receipt Date: 20151118
  Transmission Date: 20160304
  Serious: Yes (Other)
  Sender: FDA-Public Use
  Company Number: None

PATIENT
  Age: 68 Year
  Sex: Male

DRUGS (2)
  1. BICALUTAMIDE 50 MG TEVA [Suspect]
     Active Substance: BICALUTAMIDE
     Indication: PROSTATE CANCER
     Route: 048
  2. XTANDI [Concomitant]
     Active Substance: ENZALUTAMIDE

REACTIONS (2)
  - Medication error [None]
  - Overdose [None]

NARRATIVE: CASE EVENT DATE: 20151027
